FAERS Safety Report 12942569 (Version 2)
Quarter: 2017Q1

REPORT INFORMATION
  Report Type: Spontaneous
  Country: TR (occurrence: TR)
  Receive Date: 20161115
  Receipt Date: 20170118
  Transmission Date: 20170428
  Serious: Yes (Other)
  Sender: FDA-Public Use
  Company Number: TR-PFIZER INC-2016523321

PATIENT
  Age: 63 Year
  Sex: Female

DRUGS (9)
  1. METHYLPREDNISOLONE. [Concomitant]
     Active Substance: METHYLPREDNISOLONE
     Indication: CENTRAL NERVOUS SYSTEM INFECTION
     Dosage: 20 MG, UNK (EVERY 48 H)
     Route: 042
  2. GENTAMICIN. [Concomitant]
     Active Substance: GENTAMICIN
     Indication: CENTRAL NERVOUS SYSTEM INFECTION
     Dosage: 80 MG, 3X/DAY
     Route: 042
  3. DEXAMETHASONE. [Concomitant]
     Active Substance: DEXAMETHASONE
     Indication: CENTRAL NERVOUS SYSTEM INFECTION
     Dosage: UNK
     Route: 042
  4. LINEZOLID. [Suspect]
     Active Substance: LINEZOLID
     Indication: DEPRESSED LEVEL OF CONSCIOUSNESS
  5. METHOTREXATE. [Concomitant]
     Active Substance: METHOTREXATE
     Indication: CENTRAL NERVOUS SYSTEM INFECTION
     Dosage: UNK
  6. LINEZOLID. [Suspect]
     Active Substance: LINEZOLID
     Indication: CENTRAL NERVOUS SYSTEM INFECTION
     Dosage: 600 MG, 2X/DAY
     Route: 042
  7. AMPICILLIN [Concomitant]
     Active Substance: AMPICILLIN
     Indication: CENTRAL NERVOUS SYSTEM INFECTION
     Dosage: UNK
  8. METHYLPREDNISOLONE. [Concomitant]
     Active Substance: METHYLPREDNISOLONE
     Dosage: 8 MG, DAILY (DOSE WAS CHANGED)
  9. PENICILLIN G /00000901/ [Concomitant]
     Active Substance: PENICILLIN G
     Indication: CENTRAL NERVOUS SYSTEM INFECTION
     Dosage: 4000000 IU, EVERY 4 HRS
     Route: 042

REACTIONS (2)
  - Haematuria [Unknown]
  - Thrombocytopenia [Unknown]
